FAERS Safety Report 11231592 (Version 1)
Quarter: 2015Q3

REPORT INFORMATION
  Report Type: Spontaneous
  Country: FR (occurrence: FR)
  Receive Date: 20150701
  Receipt Date: 20150701
  Transmission Date: 20151125
  Serious: Yes (Hospitalization, Other)
  Sender: FDA-Public Use
  Company Number: FR-RECKITT BENCKISER PHARMACEUTICAL, INC-RB-080687-2015

PATIENT
  Age: 34 Year
  Sex: Male

DRUGS (8)
  1. BACLOFEN. [Suspect]
     Active Substance: BACLOFEN
     Dosage: 22 TABLETS UNK
     Route: 065
     Dates: start: 20150525, end: 201505
  2. BACLOFEN. [Suspect]
     Active Substance: BACLOFEN
     Indication: ALCOHOLISM
     Dosage: 120 MG, UNK
     Route: 065
  3. BACLOFEN. [Suspect]
     Active Substance: BACLOFEN
     Dosage: 22 TABLETS OF BACLOFEN
     Route: 065
     Dates: start: 20150528, end: 201505
  4. SUBUTEX [Suspect]
     Active Substance: BUPRENORPHINE HYDROCHLORIDE
     Indication: DRUG DEPENDENCE
     Dosage: 4 MG, QD
     Route: 060
  5. BACLOFEN. [Suspect]
     Active Substance: BACLOFEN
     Dosage: 270 MG, RECURRENT
     Route: 048
     Dates: start: 20150531
  6. BACLOFEN. [Suspect]
     Active Substance: BACLOFEN
     Dosage: 22 TABLETS OF BACLOFEN
     Route: 065
     Dates: start: 20150530, end: 201505
  7. BACLOFEN. [Suspect]
     Active Substance: BACLOFEN
     Dosage: 90 MG UNK
     Route: 065
     Dates: start: 2015, end: 2015
  8. BACLOFEN. [Suspect]
     Active Substance: BACLOFEN
     Dosage: 22 TO 30 TABLETS, UNK
     Route: 065
     Dates: start: 20150524, end: 20150524

REACTIONS (11)
  - Overdose [Recovering/Resolving]
  - Epilepsy [Recovered/Resolved with Sequelae]
  - Elevated mood [Recovered/Resolved]
  - Delirium [Recovered/Resolved with Sequelae]
  - Logorrhoea [Recovering/Resolving]
  - Hallucination [Recovered/Resolved with Sequelae]
  - Psychomotor hyperactivity [Recovered/Resolved with Sequelae]
  - Disorientation [Recovered/Resolved with Sequelae]
  - Psychiatric decompensation [Recovered/Resolved]
  - Confusional state [Recovered/Resolved with Sequelae]
  - Mania [Recovered/Resolved]

NARRATIVE: CASE EVENT DATE: 20150531
